FAERS Safety Report 24991113 (Version 1)
Quarter: 2025Q1

REPORT INFORMATION
  Report Type: Spontaneous
  Country: US (occurrence: US)
  Receive Date: 20250220
  Receipt Date: 20250220
  Transmission Date: 20250408
  Serious: No
  Sender: KAMADA LTD.
  Company Number: US-KI BIOPHARMA, LLC-2024KAM00016

PATIENT
  Sex: Male

DRUGS (1)
  1. CYTOGAM [Suspect]
     Active Substance: HUMAN CYTOMEGALOVIRUS IMMUNE GLOBULIN

REACTIONS (2)
  - Infusion site swelling [Unknown]
  - Extravasation [Unknown]
